FAERS Safety Report 8849103 (Version 4)
Quarter: 2015Q4

REPORT INFORMATION
  Report Type: Spontaneous
  Country: US (occurrence: US)
  Receive Date: 20121019
  Receipt Date: 20151030
  Transmission Date: 20160305
  Serious: No
  Sender: FDA-Public Use
  Company Number: US-BAYER-2012-108856

PATIENT
  Age: 27 Year
  Sex: Female
  Weight: 52 kg

DRUGS (3)
  1. BETASERON [Suspect]
     Active Substance: INTERFERON BETA-1B
     Indication: MULTIPLE SCLEROSIS
     Dosage: 0.25 MG, QOD
     Route: 058
     Dates: start: 20020722
  2. AMPYRA [Suspect]
     Active Substance: DALFAMPRIDINE
     Dosage: UNK
  3. BETASERON [Suspect]
     Active Substance: INTERFERON BETA-1B
     Indication: MULTIPLE SCLEROSIS
     Dosage: 8 MIU, QOD
     Route: 058
     Dates: start: 19931220

REACTIONS (13)
  - Injection site erythema [None]
  - Injection site scar [Not Recovered/Not Resolved]
  - Injection site dryness [Recovering/Resolving]
  - Multiple use of single-use product [None]
  - Injection site exfoliation [None]
  - Injection site erythema [Recovering/Resolving]
  - Injection site pain [Recovering/Resolving]
  - Wrong technique in product usage process [None]
  - Injection site erythema [Not Recovered/Not Resolved]
  - Injection site exfoliation [Recovering/Resolving]
  - Injection site bruising [Not Recovered/Not Resolved]
  - Injection site dryness [None]
  - Injection site induration [None]

NARRATIVE: CASE EVENT DATE: 19931220
